FAERS Safety Report 8424368-4 (Version None)
Quarter: 2012Q2

REPORT INFORMATION
  Report Type: 
  Country: None (occurrence: None)
  Receive Date: 20120608
  Receipt Date: 20111115
  Transmission Date: 20120825
  Serious: No
  Sender: FDA-Public Use
  Company Number: US-ASTRAZENECA-2011SE54606

PATIENT
  Age: 79 Year
  Sex: Female
  Weight: 73.5 kg

DRUGS (6)
  1. PULMICORT FLEXHALER [Suspect]
     Indication: ASTHMA
     Dosage: 180 MCG, 2 PUFFS BID
     Route: 055
     Dates: start: 20110801
  2. VERAPAMIL [Concomitant]
     Indication: ATRIAL FIBRILLATION
  3. PULMICORT FLEXHALER [Suspect]
     Dosage: 1 PUFF BID
     Route: 055
     Dates: start: 20110101
  4. COUMADIN [Concomitant]
     Indication: ATRIAL FIBRILLATION
  5. VERAPAMIL [Concomitant]
     Indication: CARDIAC DISORDER
  6. COUMADIN [Concomitant]
     Indication: BLOOD DISORDER

REACTIONS (3)
  - PAIN IN EXTREMITY [None]
  - RESTLESSNESS [None]
  - BACK PAIN [None]
